FAERS Safety Report 5468300-4 (Version None)
Quarter: 2007Q3

REPORT INFORMATION
  Report Type: 
  Country: None (occurrence: None)
  Receive Date: 20070924
  Receipt Date: 20070911
  Transmission Date: 20080115
  Serious: Yes (Other)
  Sender: FDA-Public Use
  Company Number: GXKR2007FR07908

PATIENT
  Age: 62 Year
  Sex: Female

DRUGS (4)
  1. ISONIAZID [Suspect]
     Indication: BONE TUBERCULOSIS
  2. RIFAMPICIN [Suspect]
     Indication: BONE TUBERCULOSIS
  3. ETHAMBUTOL HYDROCHLORIDE [Suspect]
     Indication: BONE TUBERCULOSIS
  4. STREPTOMYCIN [Suspect]
     Indication: BONE TUBERCULOSIS

REACTIONS (7)
  - ABSCESS [None]
  - CONDITION AGGRAVATED [None]
  - DRUG EFFECT DECREASED [None]
  - INFLAMMATION [None]
  - LYMPHADENOPATHY [None]
  - PARADOXICAL DRUG REACTION [None]
  - SPINAL DISORDER [None]
